FAERS Safety Report 7597174-0 (Version None)
Quarter: 2011Q3

REPORT INFORMATION
  Report Type: 
  Country: None (occurrence: None)
  Receive Date: 20110708
  Receipt Date: 20100709
  Transmission Date: 20111222
  Serious: No
  Sender: FDA-Public Use
  Company Number: US-GLAXOSMITHKLINE-A0869504A

PATIENT
  Age: 64 Year
  Sex: Female

DRUGS (7)
  1. OXYBUTYNIN [Concomitant]
  2. PROAIR HFA [Concomitant]
  3. DIFLUCAN [Concomitant]
  4. FLOVENT [Suspect]
     Indication: DYSPNOEA
     Dosage: 2PUFF TWICE PER DAY
     Route: 055
     Dates: start: 20030407
  5. LANTUS [Concomitant]
  6. CLINDAMYCIN [Concomitant]
  7. SEPTRA DS [Concomitant]

REACTIONS (2)
  - PRODUCT QUALITY ISSUE [None]
  - DRUG INEFFECTIVE [None]
